FAERS Safety Report 5940761-3 (Version None)
Quarter: 2008Q4

REPORT INFORMATION
  Report Type: 
  Country: None (occurrence: None)
  Receive Date: 20081030
  Receipt Date: 20081024
  Transmission Date: 20090506
  Serious: Yes (Death)
  Sender: FDA-Public Use
  Company Number: 2008-185900-NL

PATIENT
  Age: 50 Year
  Sex: Male

DRUGS (6)
  1. MIRTAZAPINE [Suspect]
     Indication: DEPRESSION
     Dosage: DF/45 MG ORAL
     Route: 048
     Dates: start: 20060101, end: 20060101
  2. MIRTAZAPINE [Suspect]
     Indication: DEPRESSION
     Dosage: DF/45 MG ORAL
     Route: 048
     Dates: start: 20080509
  3. ACETYLSALICYLIC ACID SRT [Concomitant]
  4. ATORVASTATIN CALCIUM [Concomitant]
  5. CLOPIDOGREL [Concomitant]
  6. VERAPAMIL HYDROCHLORIDE [Concomitant]

REACTIONS (1)
  - COMPLETED SUICIDE [None]
